FAERS Safety Report 6058718-3 (Version None)
Quarter: 2009Q1

REPORT INFORMATION
  Report Type: 
  Country: None (occurrence: None)
  Receive Date: 20090130
  Receipt Date: 20090121
  Transmission Date: 20090719
  Serious: Yes (Other)
  Sender: FDA-Public Use
  Company Number: IT-TEVA-184299ISR

PATIENT
  Age: 53 Year
  Sex: Male

DRUGS (6)
  1. METHOTREXATE [Suspect]
  2. VINCRISTINE [Suspect]
  3. BLEOMYCIN SULFATE [Suspect]
  4. DOXORUBICIN HCL [Suspect]
  5. CYCLOPHOSPHAMIDE [Suspect]
  6. RITUXIMAB [Suspect]

REACTIONS (2)
  - ACUTE RESPIRATORY DISTRESS SYNDROME [None]
  - ACUTE RESPIRATORY FAILURE [None]
